FAERS Safety Report 6859686-4 (Version None)
Quarter: 2010Q3

REPORT INFORMATION
  Report Type: 
  Country: None (occurrence: None)
  Receive Date: 20100720
  Receipt Date: 20100715
  Transmission Date: 20110219
  Serious: Yes (Other)
  Sender: FDA-Public Use
  Company Number: US-ASTRAZENECA-2009UW20455

PATIENT
  Age: 564 Month
  Sex: Male
  Weight: 90.7 kg

DRUGS (10)
  1. SEROQUEL [Suspect]
     Indication: DEPRESSION
     Dosage: 200MG 1XD AND 50MG 2XD
     Route: 048
     Dates: start: 20040201, end: 20050501
  2. XANAX [Concomitant]
     Indication: DEPRESSION
     Dosage: 2 MG 3XD
     Dates: start: 20040101
  3. GEODON [Concomitant]
  4. PROZAC [Concomitant]
     Indication: DEPRESSION
     Dosage: 20-40 MG 3XD
     Dates: start: 20010101
  5. PROZAC [Concomitant]
     Indication: ANXIETY
     Dosage: 20-40 MG 3XD
     Dates: start: 20010101
  6. HALICON [Concomitant]
  7. SIMVASTATIN [Concomitant]
     Indication: BLOOD CHOLESTEROL INCREASED
     Dosage: 80 MG 1XD
     Dates: start: 20010101
  8. SIMVASTATIN [Concomitant]
     Indication: HYPERLIPIDAEMIA
     Dosage: 80 MG 1XD
     Dates: start: 20010101
  9. RAMPERIL [Concomitant]
     Indication: BLOOD CHOLESTEROL INCREASED
     Dosage: 2.5MG 1XD
     Dates: start: 20010101
  10. RAMPERIL [Concomitant]
     Indication: HYPERLIPIDAEMIA
     Dosage: 2.5MG 1XD
     Dates: start: 20010101

REACTIONS (5)
  - ANGINA PECTORIS [None]
  - BLOOD GLUCOSE INCREASED [None]
  - MYOCARDIAL INFARCTION [None]
  - TYPE 2 DIABETES MELLITUS [None]
  - VISUAL ACUITY REDUCED [None]
